FAERS Safety Report 12644836 (Version 3)
Quarter: 2016Q3

REPORT INFORMATION
  Report Type: Spontaneous
  Country: US (occurrence: US)
  Receive Date: 20160811
  Receipt Date: 20160816
  Transmission Date: 20161109
  Serious: No
  Sender: FDA-Public Use
  Company Number: US-PFIZER INC-2016383002

PATIENT
  Age: 85 Year
  Sex: Female
  Weight: 55 kg

DRUGS (3)
  1. IBRANCE [Suspect]
     Active Substance: PALBOCICLIB
     Indication: NEOPLASM MALIGNANT
     Dosage: 125 MG, 1X/DAY WITH FOOD
     Route: 048
     Dates: start: 20160701, end: 20160721
  2. FASLODEX [Concomitant]
     Active Substance: FULVESTRANT
     Dosage: 250 MG, EVERY TWO WEEKS
     Route: 030
     Dates: start: 201607
  3. FASLODEX [Concomitant]
     Active Substance: FULVESTRANT
     Dosage: 250 MG, ONCE A MONTH
     Route: 030

REACTIONS (3)
  - White blood cell count decreased [Unknown]
  - Red blood cell count abnormal [Unknown]
  - Platelet count abnormal [Unknown]

NARRATIVE: CASE EVENT DATE: 20160805
